FAERS Safety Report 6091887-8 (Version None)
Quarter: 2009Q1

REPORT INFORMATION
  Report Type: 
  Country: None (occurrence: None)
  Receive Date: 20090225
  Receipt Date: 20080912
  Transmission Date: 20090719
  Serious: No
  Sender: FDA-Public Use
  Company Number: A0747291A

PATIENT
  Sex: Female

DRUGS (3)
  1. VALTREX [Suspect]
     Dosage: 1G TWICE PER DAY
     Route: 048
  2. BENICAR [Concomitant]
  3. ACID REFLUX MED. [Concomitant]

REACTIONS (1)
  - DRUG INEFFECTIVE [None]
